FAERS Safety Report 20405976 (Version 1)
Quarter: 2022Q1

REPORT INFORMATION
  Report Type: Report from Study
  Country: US (occurrence: US)
  Receive Date: 20220131
  Receipt Date: 20220131
  Transmission Date: 20220424
  Serious: No
  Sender: FDA-Public Use
  Company Number: US-NOVARTISTESTPH-NVSC2022US020565

PATIENT
  Sex: Male

DRUGS (1)
  1. ENTRESTO [Suspect]
     Active Substance: SACUBITRIL\VALSARTAN
     Indication: Product used for unknown indication
     Dosage: UNK UNK, BID(24/26MG)
     Route: 048

REACTIONS (5)
  - Blood pressure fluctuation [Unknown]
  - Hypertension [Unknown]
  - Hypotension [Unknown]
  - Dizziness [Unknown]
  - Incorrect dose administered [Unknown]
